FAERS Safety Report 13661875 (Version 4)
Quarter: 2018Q3

REPORT INFORMATION
  Report Type: Spontaneous
  Country: US (occurrence: US)
  Receive Date: 20170616
  Receipt Date: 20180824
  Transmission Date: 20181010
  Serious: Yes (Other)
  Sender: FDA-Public Use
  Company Number: US-009507513-1706USA002807

PATIENT
  Sex: Female

DRUGS (1)
  1. NEXPLANON [Suspect]
     Active Substance: ETONOGESTREL
     Dosage: 1 ROD
     Route: 059

REACTIONS (5)
  - Pregnancy with implant contraceptive [Recovered/Resolved]
  - Ectopic pregnancy [Recovered/Resolved]
  - Unintended pregnancy [Recovered/Resolved]
  - Complication associated with device [Not Recovered/Not Resolved]
  - Adverse event [Unknown]
